FAERS Safety Report 9976248 (Version 1)
Quarter: 2014Q1

REPORT INFORMATION
  Report Type: Report from Study
  Country: US (occurrence: US)
  Receive Date: 20140306
  Receipt Date: 20140306
  Transmission Date: 20141002
  Serious: No
  Sender: FDA-Public Use
  Company Number: US-ABBVIE-13P-163-1166982-00

PATIENT
  Sex: Female
  Weight: 28.15 kg

DRUGS (7)
  1. HUMIRA [Suspect]
     Indication: CROHN^S DISEASE
     Dosage: LOADING DOSE OF 4 PENS
     Route: 058
     Dates: start: 201209, end: 201209
  2. HUMIRA [Suspect]
     Route: 058
     Dates: start: 201209, end: 201210
  3. HUMIRA [Suspect]
     Route: 058
     Dates: start: 201210
  4. METHOTREXATE [Concomitant]
     Indication: PRODUCT USED FOR UNKNOWN INDICATION
  5. FOLIC ACID [Concomitant]
     Indication: PRODUCT USED FOR UNKNOWN INDICATION
  6. IRON [Concomitant]
     Indication: PRODUCT USED FOR UNKNOWN INDICATION
  7. ONDAR [Concomitant]
     Indication: DRUG THERAPY

REACTIONS (1)
  - Rash [Not Recovered/Not Resolved]
